FAERS Safety Report 14210004 (Version 1)
Quarter: 2017Q4

REPORT INFORMATION
  Report Type: Spontaneous
  Country: US (occurrence: US)
  Receive Date: 20171121
  Receipt Date: 20171121
  Transmission Date: 20180321
  Serious: No
  Sender: FDA-Public Use
  Company Number: None

PATIENT
  Age: 62 Year
  Sex: Female
  Weight: 63.9 kg

DRUGS (15)
  1. MYCOPHENOLATE MODITIL [Concomitant]
  2. COQ10 [Concomitant]
     Active Substance: UBIDECARENONE
  3. ALPHA LIPOIC ACID [Concomitant]
     Active Substance: .ALPHA.-LIPOIC ACID
  4. SPIRONOLACTONE. [Concomitant]
     Active Substance: SPIRONOLACTONE
  5. CALCIUM CITRATE [Concomitant]
     Active Substance: CALCIUM CITRATE
  6. FISH OIL [Concomitant]
     Active Substance: FISH OIL
  7. LYSENE [Concomitant]
  8. METHOTREXATE. [Concomitant]
     Active Substance: METHOTREXATE
  9. LEVOTHYROXIN [Concomitant]
     Active Substance: LEVOTHYROXINE
  10. ESCITALOPRAM [Concomitant]
     Active Substance: ESCITALOPRAM OXALATE
  11. FOLIC ACID. [Concomitant]
     Active Substance: FOLIC ACID
  12. MELATONIN [Concomitant]
     Active Substance: MELATONIN
  13. XIIDRA [Suspect]
     Active Substance: LIFITEGRAST
     Indication: DRY EYE
     Dosage: ?          QUANTITY:1 DROP(S);?
     Route: 047
     Dates: start: 20170906, end: 20171121
  14. MAGNESIUM [Concomitant]
     Active Substance: MAGNESIUM
  15. VITAMIN C [Concomitant]
     Active Substance: ASCORBIC ACID

REACTIONS (3)
  - Photophobia [None]
  - Superficial injury of eye [None]
  - Eye irritation [None]

NARRATIVE: CASE EVENT DATE: 20171001
